FAERS Safety Report 4575914-2 (Version None)
Quarter: 2005Q1

REPORT INFORMATION
  Report Type: 
  Country: None (occurrence: None)
  Receive Date: 20050207
  Receipt Date: 20050121
  Transmission Date: 20050727
  Serious: Yes (Death)
  Sender: FDA-Public Use
  Company Number: 2005S1000268

PATIENT
  Age: 66 Year
  Sex: Male

DRUGS (12)
  1. CLOZAPINE [Suspect]
     Indication: SCHIZOPHRENIA
     Dosage: 200 MG GAM AND 300MG QHS, ORAL
     Route: 048
     Dates: end: 20050119
  2. HEPARIN [Concomitant]
  3. LOXAPINE [Concomitant]
  4. METRONIDAZOLE [Concomitant]
  5. DIVALOPROEX [Concomitant]
  6. VANCOMYCIN [Concomitant]
  7. ACETAMINOPHEN [Concomitant]
  8. FLUTICASONE PROPIONATE [Concomitant]
  9. CALCIUM GLUCONATE [Concomitant]
  10. BUSPIRONE [Concomitant]
  11. CLONAZEPAM [Concomitant]
  12. MONTELUKAST [Concomitant]

REACTIONS (2)
  - PHARMACEUTICAL PRODUCT COMPLAINT [None]
  - PNEUMONIA [None]
